FAERS Safety Report 25440028 (Version 1)
Quarter: 2025Q2

REPORT INFORMATION
  Report Type: Spontaneous
  Country: GB (occurrence: GB)
  Receive Date: 20250616
  Receipt Date: 20250616
  Transmission Date: 20250717
  Serious: Yes (Other)
  Sender: MYLAN
  Company Number: GB-MHRA-TPP42021785C9998032YC1749470658935

PATIENT
  Age: 39 Year
  Sex: Female
  Weight: 51 kg

DRUGS (44)
  1. DOXYCYCLINE [Suspect]
     Active Substance: DOXYCYCLINE
     Indication: Ill-defined disorder
  2. DOXYCYCLINE [Suspect]
     Active Substance: DOXYCYCLINE
     Route: 065
  3. DOXYCYCLINE [Suspect]
     Active Substance: DOXYCYCLINE
     Route: 065
  4. DOXYCYCLINE [Suspect]
     Active Substance: DOXYCYCLINE
  5. ETHINYL ESTRADIOL\LEVONORGESTREL [Concomitant]
     Active Substance: ETHINYL ESTRADIOL\LEVONORGESTREL
     Indication: Ill-defined disorder
     Dosage: 1 DOSAGE FORM, QD (1 A DAY AT THE SAME TIME DAILY FOR 21 DAYS THEN.)
     Dates: start: 20250402
  6. ETHINYL ESTRADIOL\LEVONORGESTREL [Concomitant]
     Active Substance: ETHINYL ESTRADIOL\LEVONORGESTREL
     Dosage: 1 DOSAGE FORM, QD (1 A DAY AT THE SAME TIME DAILY FOR 21 DAYS THEN.)
     Route: 065
     Dates: start: 20250402
  7. ETHINYL ESTRADIOL\LEVONORGESTREL [Concomitant]
     Active Substance: ETHINYL ESTRADIOL\LEVONORGESTREL
     Dosage: 1 DOSAGE FORM, QD (1 A DAY AT THE SAME TIME DAILY FOR 21 DAYS THEN.)
     Route: 065
     Dates: start: 20250402
  8. ETHINYL ESTRADIOL\LEVONORGESTREL [Concomitant]
     Active Substance: ETHINYL ESTRADIOL\LEVONORGESTREL
     Dosage: 1 DOSAGE FORM, QD (1 A DAY AT THE SAME TIME DAILY FOR 21 DAYS THEN.)
     Dates: start: 20250402
  9. BECLOMETHASONE DIPROPIONATE\FORMOTEROL FUMARATE [Concomitant]
     Active Substance: BECLOMETHASONE DIPROPIONATE\FORMOTEROL FUMARATE
     Indication: Ill-defined disorder
     Dosage: UNK, BID (MAINTENANCE, INHALE ONE PUFF TWICE A DAY. FOR I.)
     Dates: start: 20250501, end: 20250531
  10. BECLOMETHASONE DIPROPIONATE\FORMOTEROL FUMARATE [Concomitant]
     Active Substance: BECLOMETHASONE DIPROPIONATE\FORMOTEROL FUMARATE
     Dosage: UNK, BID (MAINTENANCE, INHALE ONE PUFF TWICE A DAY. FOR I.)
     Route: 055
     Dates: start: 20250501, end: 20250531
  11. BECLOMETHASONE DIPROPIONATE\FORMOTEROL FUMARATE [Concomitant]
     Active Substance: BECLOMETHASONE DIPROPIONATE\FORMOTEROL FUMARATE
     Dosage: UNK, BID (MAINTENANCE, INHALE ONE PUFF TWICE A DAY. FOR I.)
     Route: 055
     Dates: start: 20250501, end: 20250531
  12. BECLOMETHASONE DIPROPIONATE\FORMOTEROL FUMARATE [Concomitant]
     Active Substance: BECLOMETHASONE DIPROPIONATE\FORMOTEROL FUMARATE
     Dosage: UNK, BID (MAINTENANCE, INHALE ONE PUFF TWICE A DAY. FOR I.)
     Dates: start: 20250501, end: 20250531
  13. CLARITHROMYCIN [Concomitant]
     Active Substance: CLARITHROMYCIN
     Indication: Ill-defined disorder
     Dosage: 1 DOSAGE FORM, BID (TAKE ONE TABLET TWICE A DAY FOR 7 DAYS, TO TREA...)
     Dates: start: 20250523, end: 20250530
  14. CLARITHROMYCIN [Concomitant]
     Active Substance: CLARITHROMYCIN
     Dosage: 1 DOSAGE FORM, BID (TAKE ONE TABLET TWICE A DAY FOR 7 DAYS, TO TREA...)
     Route: 065
     Dates: start: 20250523, end: 20250530
  15. CLARITHROMYCIN [Concomitant]
     Active Substance: CLARITHROMYCIN
     Dosage: 1 DOSAGE FORM, BID (TAKE ONE TABLET TWICE A DAY FOR 7 DAYS, TO TREA...)
     Route: 065
     Dates: start: 20250523, end: 20250530
  16. CLARITHROMYCIN [Concomitant]
     Active Substance: CLARITHROMYCIN
     Dosage: 1 DOSAGE FORM, BID (TAKE ONE TABLET TWICE A DAY FOR 7 DAYS, TO TREA...)
     Dates: start: 20250523, end: 20250530
  17. FEXOFENADINE [Concomitant]
     Active Substance: FEXOFENADINE HYDROCHLORIDE
     Indication: Ill-defined disorder
     Dosage: 1 DOSAGE FORM, QD (TAKE ONE DAILY)
     Dates: start: 20250604
  18. FEXOFENADINE [Concomitant]
     Active Substance: FEXOFENADINE HYDROCHLORIDE
     Dosage: 1 DOSAGE FORM, QD (TAKE ONE DAILY)
     Route: 065
     Dates: start: 20250604
  19. FEXOFENADINE [Concomitant]
     Active Substance: FEXOFENADINE HYDROCHLORIDE
     Dosage: 1 DOSAGE FORM, QD (TAKE ONE DAILY)
     Route: 065
     Dates: start: 20250604
  20. FEXOFENADINE [Concomitant]
     Active Substance: FEXOFENADINE HYDROCHLORIDE
     Dosage: 1 DOSAGE FORM, QD (TAKE ONE DAILY)
     Dates: start: 20250604
  21. HYDROCORTISONE [Concomitant]
     Active Substance: HYDROCORTISONE
     Indication: Ill-defined disorder
  22. HYDROCORTISONE [Concomitant]
     Active Substance: HYDROCORTISONE
     Route: 061
  23. HYDROCORTISONE [Concomitant]
     Active Substance: HYDROCORTISONE
     Route: 061
  24. HYDROCORTISONE [Concomitant]
     Active Substance: HYDROCORTISONE
  25. OMEPRAZOLE [Concomitant]
     Active Substance: OMEPRAZOLE
     Indication: Ill-defined disorder
     Dosage: 1 DOSAGE FORM, QD (TAKE ONE CAPSULE ONCE A DAY)
     Dates: start: 20250609
  26. OMEPRAZOLE [Concomitant]
     Active Substance: OMEPRAZOLE
     Dosage: 1 DOSAGE FORM, QD (TAKE ONE CAPSULE ONCE A DAY)
     Route: 065
     Dates: start: 20250609
  27. OMEPRAZOLE [Concomitant]
     Active Substance: OMEPRAZOLE
     Dosage: 1 DOSAGE FORM, QD (TAKE ONE CAPSULE ONCE A DAY)
     Route: 065
     Dates: start: 20250609
  28. OMEPRAZOLE [Concomitant]
     Active Substance: OMEPRAZOLE
     Dosage: 1 DOSAGE FORM, QD (TAKE ONE CAPSULE ONCE A DAY)
     Dates: start: 20250609
  29. FLUTIFORM [Concomitant]
     Active Substance: FLUTIFORM
     Indication: Ill-defined disorder
     Dosage: UNK, BID (INHALE TWO PUFFS TWICE DAILY (PLEASE RETURN YOU...)
     Dates: start: 20230622
  30. FLUTIFORM [Concomitant]
     Active Substance: FLUTIFORM
     Dosage: UNK, BID (INHALE TWO PUFFS TWICE DAILY (PLEASE RETURN YOU...)
     Route: 055
     Dates: start: 20230622
  31. FLUTIFORM [Concomitant]
     Active Substance: FLUTIFORM
     Dosage: UNK, BID (INHALE TWO PUFFS TWICE DAILY (PLEASE RETURN YOU...)
     Route: 055
     Dates: start: 20230622
  32. FLUTIFORM [Concomitant]
     Active Substance: FLUTIFORM
     Dosage: UNK, BID (INHALE TWO PUFFS TWICE DAILY (PLEASE RETURN YOU...)
     Dates: start: 20230622
  33. ALBUTEROL [Concomitant]
     Active Substance: ALBUTEROL
     Indication: Ill-defined disorder
  34. ALBUTEROL [Concomitant]
     Active Substance: ALBUTEROL
     Route: 055
  35. ALBUTEROL [Concomitant]
     Active Substance: ALBUTEROL
     Route: 055
  36. ALBUTEROL [Concomitant]
     Active Substance: ALBUTEROL
  37. TRIMETHOPRIM [Concomitant]
     Active Substance: TRIMETHOPRIM
     Indication: Prophylaxis
  38. TRIMETHOPRIM [Concomitant]
     Active Substance: TRIMETHOPRIM
     Indication: Ill-defined disorder
     Route: 065
  39. TRIMETHOPRIM [Concomitant]
     Active Substance: TRIMETHOPRIM
     Route: 065
  40. TRIMETHOPRIM [Concomitant]
     Active Substance: TRIMETHOPRIM
  41. MOMETASONE [Concomitant]
     Active Substance: MOMETASONE
     Indication: Ill-defined disorder
     Dosage: UNK, QD (APPLY ONE SPRAY INTO EACH NOSTRIL ONCE EACH DAY...)
     Dates: start: 20240819
  42. MOMETASONE [Concomitant]
     Active Substance: MOMETASONE
     Dosage: UNK, QD (APPLY ONE SPRAY INTO EACH NOSTRIL ONCE EACH DAY...)
     Route: 045
     Dates: start: 20240819
  43. MOMETASONE [Concomitant]
     Active Substance: MOMETASONE
     Dosage: UNK, QD (APPLY ONE SPRAY INTO EACH NOSTRIL ONCE EACH DAY...)
     Route: 045
     Dates: start: 20240819
  44. MOMETASONE [Concomitant]
     Active Substance: MOMETASONE
     Dosage: UNK, QD (APPLY ONE SPRAY INTO EACH NOSTRIL ONCE EACH DAY...)
     Dates: start: 20240819

REACTIONS (1)
  - Gastrooesophageal reflux disease [Recovering/Resolving]
